FAERS Safety Report 10024849 (Version 2)
Quarter: 2014Q1

REPORT INFORMATION
  Report Type: Spontaneous
  Country: None (occurrence: US)
  Receive Date: 20140320
  Receipt Date: 20140320
  Transmission Date: 20141002
  Serious: Yes (Hospitalization)
  Sender: FDA-Public Use
  Company Number: US-BAXTER-2014BAX012079

PATIENT
  Sex: Female
  Weight: 78 kg

DRUGS (4)
  1. DIANEAL LOW CALCIUM [Suspect]
     Indication: RENAL FAILURE CHRONIC
     Route: 033
     Dates: end: 201402
  2. DIANEAL LOW CALCIUM [Suspect]
     Route: 033
     Dates: start: 20140307
  3. DIANEAL LOW CALCIUM [Suspect]
     Indication: RENAL FAILURE CHRONIC
     Route: 033
     Dates: end: 201402
  4. DIANEAL LOW CALCIUM [Suspect]
     Route: 033
     Dates: start: 20140307

REACTIONS (2)
  - Postoperative wound infection [Recovered/Resolved]
  - Hypophagia [Recovering/Resolving]
